FAERS Safety Report 9915529 (Version 2)
Quarter: 2014Q2

REPORT INFORMATION
  Report Type: Spontaneous
  Country: FR (occurrence: FR)
  Receive Date: 20140221
  Receipt Date: 20140425
  Transmission Date: 20141212
  Serious: Yes (Hospitalization)
  Sender: FDA-Public Use
  Company Number: FR-BRISTOL-MYERS SQUIBB COMPANY-20206371

PATIENT
  Age: 67 Year
  Sex: Female

DRUGS (9)
  1. ELISOR [Suspect]
     Indication: DYSLIPIDAEMIA
     Route: 048
     Dates: end: 201312
  2. LEVOTHYROX [Concomitant]
  3. TARDYFERON [Concomitant]
  4. INEXIUM [Concomitant]
  5. PLAVIX [Concomitant]
  6. FORLAX [Concomitant]
  7. FOSAMAX [Concomitant]
  8. CACIT D3 [Concomitant]
  9. PREDNISOLONE [Concomitant]

REACTIONS (2)
  - Interstitial lung disease [Recovering/Resolving]
  - Dermatomyositis [Recovering/Resolving]
